FAERS Safety Report 5175906-9 (Version None)
Quarter: 2006Q4

REPORT INFORMATION
  Report Type: 
  Country: None (occurrence: None)
  Receive Date: 20061215
  Receipt Date: 20061212
  Transmission Date: 20070319
  Serious: Yes (Life-Threatening, Hospitalization)
  Sender: FDA-Public Use
  Company Number: GR-GLAXOSMITHKLINE-B0450592A

PATIENT
  Age: 3 Month
  Sex: Male

DRUGS (3)
  1. AUGMENTIN '125' [Suspect]
     Indication: PNEUMONIA PNEUMOCOCCAL
     Route: 042
     Dates: start: 20061128, end: 20061129
  2. CEFTAZIDIME [Suspect]
     Indication: PNEUMONIA PNEUMOCOCCAL
     Route: 042
     Dates: start: 20061128, end: 20061129
  3. FUCIDINE CAP [Suspect]
     Indication: PNEUMONIA PNEUMOCOCCAL
     Route: 042
     Dates: start: 20061128, end: 20061129

REACTIONS (4)
  - ALANINE AMINOTRANSFERASE INCREASED [None]
  - ASPARTATE AMINOTRANSFERASE INCREASED [None]
  - HEPATIC FAILURE [None]
  - LIVER DISORDER [None]
